FAERS Safety Report 24797745 (Version 1)
Quarter: 2025Q1

REPORT INFORMATION
  Report Type: Spontaneous
  Country: GB (occurrence: GB)
  Receive Date: 20250102
  Receipt Date: 20250102
  Transmission Date: 20250409
  Serious: Yes (Hospitalization, Other)
  Sender: TEVA
  Company Number: GB-MYLANLABS-2024M1073526

PATIENT
  Sex: Female

DRUGS (3)
  1. OLANZAPINE [Suspect]
     Active Substance: OLANZAPINE
     Indication: Product used for unknown indication
     Dosage: ON
     Route: 048
     Dates: start: 2024
  2. CLOZARIL [Suspect]
     Active Substance: CLOZAPINE
     Indication: Schizophrenia
     Route: 048
     Dates: start: 20030730, end: 202407
  3. CLOZARIL [Suspect]
     Active Substance: CLOZAPINE
     Indication: Schizophrenia
     Route: 048
     Dates: start: 20240823, end: 202408

REACTIONS (9)
  - Mental impairment [Unknown]
  - Schizophrenia [Unknown]
  - Hallucination, auditory [Unknown]
  - Chronic kidney disease [Recovering/Resolving]
  - Therapy cessation [Unknown]
  - Malaise [Not Recovered/Not Resolved]
  - Apathy [Unknown]
  - Catatonia [Unknown]
  - Loss of personal independence in daily activities [Unknown]

NARRATIVE: CASE EVENT DATE: 20240701
